FAERS Safety Report 7430427-5 (Version None)
Quarter: 2011Q2

REPORT INFORMATION
  Report Type: 
  Country: None (occurrence: None)
  Receive Date: 20110421
  Receipt Date: 20110418
  Transmission Date: 20111010
  Serious: Yes (Hospitalization)
  Sender: FDA-Public Use
  Company Number: CHPA2011US05584

PATIENT
  Sex: Female
  Weight: 83.9 kg

DRUGS (13)
  1. LANTUS [Concomitant]
     Indication: DIABETES MELLITUS
  2. ALBUTEROL [Concomitant]
     Indication: ASTHMA
  3. LYRICA [Concomitant]
     Indication: CARDIAC DISORDER
  4. COUMADIN [Concomitant]
     Indication: ANTICOAGULANT THERAPY
  5. XOLAIR [Concomitant]
     Indication: ASTHMA
  6. NOVOLOG [Concomitant]
     Indication: DIABETES MELLITUS
  7. XYZAL [Concomitant]
     Indication: ACARODERMATITIS
  8. ATARAX [Concomitant]
     Indication: ACARODERMATITIS
  9. VOLTAREN [Suspect]
     Indication: NERVE INJURY
     Dosage: 4 G, QID
     Route: 061
     Dates: start: 20110415
  10. MEDROL [Concomitant]
     Indication: ASTHMA
  11. ADVAIR HFA [Concomitant]
     Indication: ASTHMA
  12. SPIRIVA [Concomitant]
  13. DIGOXIN [Concomitant]
     Indication: CARDIAC DISORDER

REACTIONS (3)
  - HEART RATE INCREASED [None]
  - BLOOD PRESSURE INCREASED [None]
  - OFF LABEL USE [None]
